FAERS Safety Report 15128863 (Version 2)
Quarter: 2018Q3

REPORT INFORMATION
  Report Type: Spontaneous
  Country: CN (occurrence: CN)
  Receive Date: 20180711
  Receipt Date: 20180726
  Transmission Date: 20181010
  Serious: Yes (Hospitalization, Other)
  Sender: FDA-Public Use
  Company Number: CN-MERCK KGAA-2051707

PATIENT
  Age: 91 Year
  Sex: Female

DRUGS (2)
  1. NOVOTHYROX [Suspect]
     Active Substance: LEVOTHYROXINE SODIUM
     Indication: THYROIDITIS
     Route: 048
  2. NOVOTHYROX [Suspect]
     Active Substance: LEVOTHYROXINE SODIUM
     Route: 048
     Dates: end: 201805

REACTIONS (6)
  - Paralysis [None]
  - Cardiovascular disorder [None]
  - Fracture [None]
  - Fall [None]
  - Nervous system disorder [None]
  - Cerebrovascular disorder [None]

NARRATIVE: CASE EVENT DATE: 2016
